FAERS Safety Report 9968354 (Version 1)
Quarter: 2014Q1

REPORT INFORMATION
  Report Type: Report from Study
  Country: US (occurrence: US)
  Receive Date: 20140306
  Receipt Date: 20140306
  Transmission Date: 20141002
  Serious: No
  Sender: FDA-Public Use
  Company Number: US-ABBVIE-13P-163-1143124-00

PATIENT
  Age: 32 Year
  Sex: Female

DRUGS (2)
  1. HUMIRA [Suspect]
     Indication: PSORIATIC ARTHROPATHY
     Route: 058
     Dates: start: 201302, end: 201308
  2. HUMIRA [Suspect]
     Indication: PSORIASIS
     Route: 058
     Dates: start: 201309

REACTIONS (9)
  - Wrist fracture [Unknown]
  - Hand fracture [Unknown]
  - Injection site bruising [Unknown]
  - Pharyngitis streptococcal [Recovered/Resolved]
  - Sinusitis [Unknown]
  - Psoriasis [Unknown]
  - Pharyngitis streptococcal [Recovered/Resolved]
  - Pharyngitis streptococcal [Recovered/Resolved]
  - Sinusitis [Unknown]
